FAERS Safety Report 24711458 (Version 1)
Quarter: 2024Q4

REPORT INFORMATION
  Report Type: Spontaneous
  Country: AU (occurrence: AU)
  Receive Date: 20241209
  Receipt Date: 20241209
  Transmission Date: 20250115
  Serious: Yes (Life-Threatening)
  Sender: ELI LILLY AND COMPANY
  Company Number: AU-ELI_LILLY_AND_COMPANY-AU202412001791

PATIENT
  Age: 32 Year
  Sex: Female

DRUGS (2)
  1. MOUNJARO [Suspect]
     Active Substance: TIRZEPATIDE
     Indication: Weight control
     Dosage: 2.5 MG, UNKNOWN
     Route: 058
     Dates: start: 20241022, end: 20241119
  2. MOUNJARO [Suspect]
     Active Substance: TIRZEPATIDE
     Indication: Weight control
     Dosage: 5 MG, WEEKLY (1/W)
     Route: 058
     Dates: start: 20241119

REACTIONS (1)
  - Hepatitis C [Unknown]
